FAERS Safety Report 18500548 (Version 1)
Quarter: 2020Q4

REPORT INFORMATION
  Report Type: Spontaneous
  Country: US (occurrence: US)
  Receive Date: 20201113
  Receipt Date: 20201113
  Transmission Date: 20210114
  Serious: Yes (Other)
  Sender: FDA-Public Use
  Company Number: US-SHILPA MEDICARE LIMITED-SML-US-2020-00621

PATIENT
  Age: 73 Year
  Sex: Female

DRUGS (2)
  1. ERLOTINIB UNKNOWN [Suspect]
     Active Substance: ERLOTINIB
     Indication: BREAST CANCER RECURRENT
     Dosage: STARTED AT AN UNKNOWN DOSE
     Route: 065
  2. ERLOTINIB UNKNOWN [Suspect]
     Active Substance: ERLOTINIB
     Indication: NON-SMALL CELL LUNG CANCER METASTATIC
     Dosage: DOSE REDUCED

REACTIONS (9)
  - Melanocytic naevus [Unknown]
  - Xerosis [Unknown]
  - Hypersensitivity vasculitis [Recovered/Resolved]
  - Rash pustular [Unknown]
  - Dermatitis acneiform [Unknown]
  - Pruritus [Unknown]
  - Hair texture abnormal [Unknown]
  - Paronychia [Unknown]
  - Naevoid melanoma [Unknown]
